FAERS Safety Report 9132040 (Version 1)
Quarter: 2013Q1

REPORT INFORMATION
  Report Type: Report from Study
  Country: US (occurrence: US)
  Receive Date: 20130301
  Receipt Date: 20130301
  Transmission Date: 20140127
  Serious: No
  Sender: FDA-Public Use
  Company Number: US-MYLANLABS-2012S1001038

PATIENT
  Age: 15 Year
  Sex: Male
  Weight: 63.5 kg

DRUGS (2)
  1. AMNESTEEM CAPSULES [Suspect]
     Indication: ACNE
     Dates: start: 20111109, end: 20111207
  2. AMNESTEEM CAPSULES [Suspect]
     Indication: ACNE CYSTIC
     Dates: start: 20111109, end: 20111207

REACTIONS (2)
  - Rash [Unknown]
  - Dry skin [Unknown]
